FAERS Safety Report 14676042 (Version 1)
Quarter: 2018Q1

REPORT INFORMATION
  Report Type: Spontaneous
  Country: FR (occurrence: FR)
  Receive Date: 20180323
  Receipt Date: 20180323
  Transmission Date: 20180509
  Serious: Yes (Other)
  Sender: FDA-Public Use
  Company Number: FR-TEVA-2018-FR-870196

PATIENT
  Age: 36 Year
  Sex: Female

DRUGS (4)
  1. SOLUPRED//PREDNISOLONE METASULFOBENZOATE SODIUM [Suspect]
     Active Substance: PREDNISOLONE SODIUM METAZOATE
     Indication: SINUSITIS
     Route: 048
     Dates: start: 20171213, end: 20171217
  2. AMOXICILLIN. [Suspect]
     Active Substance: AMOXICILLIN
     Indication: SINUSITIS
     Route: 048
     Dates: start: 20171213, end: 20171219
  3. PYOSTACINE 500 MG, COMPRIM? PELLICUL? S?CABLE [Suspect]
     Active Substance: PRISTINAMYCIN
     Indication: SINUSITIS
     Route: 048
     Dates: start: 20171222, end: 20171223
  4. OPTIMIZETTE 75 MICROGRAMMES, COMPRIM? PELLICUL? [Suspect]
     Active Substance: DESOGESTREL
     Indication: CONTRACEPTION
     Dosage: UNSPECIFIED
     Route: 048
     Dates: start: 20171222

REACTIONS (2)
  - Medication error [Recovered/Resolved]
  - Urticaria [Not Recovered/Not Resolved]

NARRATIVE: CASE EVENT DATE: 20171222
